FAERS Safety Report 9197550 (Version 1)
Quarter: 2013Q1

REPORT INFORMATION
  Report Type: Spontaneous
  Country: FR (occurrence: FR)
  Receive Date: 20130328
  Receipt Date: 20130328
  Transmission Date: 20140127
  Serious: Yes (Hospitalization)
  Sender: FDA-Public Use
  Company Number: FR-GLAXOSMITHKLINE-B0877092A

PATIENT
  Age: 6 Month
  Sex: Male

DRUGS (4)
  1. LAMICTAL [Suspect]
     Indication: EPILEPSY
     Route: 048
     Dates: start: 20130124, end: 20130209
  2. DESMOPRESSIN [Concomitant]
     Indication: DIABETES INSIPIDUS
     Route: 065
  3. L-THYROXINE [Concomitant]
     Indication: HYPOTHYROIDISM
     Route: 065
  4. VALPROATE SODIUM [Concomitant]
     Indication: EPILEPSY
     Route: 065
     Dates: start: 201212

REACTIONS (10)
  - Toxic skin eruption [Recovered/Resolved]
  - Acute respiratory failure [Recovered/Resolved]
  - Pyrexia [Recovered/Resolved]
  - Vomiting [Recovered/Resolved]
  - Diarrhoea [Recovered/Resolved]
  - Rash macular [Recovered/Resolved]
  - Erythema [Recovered/Resolved]
  - Oral mucosal eruption [Recovered/Resolved]
  - Aphthous stomatitis [Recovered/Resolved]
  - Off label use [Unknown]
